FAERS Safety Report 7726634-4 (Version None)
Quarter: 2011Q3

REPORT INFORMATION
  Report Type: 
  Country: None (occurrence: None)
  Receive Date: 20110902
  Receipt Date: 20110825
  Transmission Date: 20111222
  Serious: Yes (Other)
  Sender: FDA-Public Use
  Company Number: PHHY2011CA74138

PATIENT
  Sex: Female

DRUGS (1)
  1. CLOZAPINE [Suspect]

REACTIONS (5)
  - CONSTIPATION [None]
  - HYPOTENSION [None]
  - BLOOD COUNT ABNORMAL [None]
  - ABDOMINAL PAIN [None]
  - ANAEMIA [None]
